FAERS Safety Report 15966014 (Version 1)
Quarter: 2019Q1

REPORT INFORMATION
  Report Type: Spontaneous
  Country: US (occurrence: US)
  Receive Date: 20190215
  Receipt Date: 20190215
  Transmission Date: 20190418
  Serious: No
  Sender: FDA-Public Use
  Company Number: US-HORIZON-PRO-0033-2019

PATIENT
  Sex: Female

DRUGS (1)
  1. PROCYSBI [Suspect]
     Active Substance: CYSTEAMINE BITARTRATE
     Indication: CYSTINOSIS
     Dosage: 2700 MG DAILY; ORAL - TWICE DAILY
     Route: 048
     Dates: start: 20130806

REACTIONS (2)
  - Overdose [Recovering/Resolving]
  - Nausea [Recovering/Resolving]
